FAERS Safety Report 4976587-7 (Version None)
Quarter: 2006Q2

REPORT INFORMATION
  Report Type: 
  Country: None (occurrence: None)
  Receive Date: 20060419
  Receipt Date: 20051004
  Transmission Date: 20061013
  Serious: Yes (Hospitalization)
  Sender: FDA-Public Use
  Company Number: US-MERCK-0510USA03490

PATIENT
  Age: 46 Year
  Sex: Male
  Weight: 71 kg

DRUGS (1)
  1. VIOXX [Suspect]
     Indication: PAIN
     Route: 048
     Dates: start: 20040710, end: 20040701

REACTIONS (8)
  - ALCOHOL POISONING [None]
  - ASTHMA [None]
  - BRONCHOSPASM [None]
  - CHRONIC OBSTRUCTIVE PULMONARY DISEASE [None]
  - ELECTROCARDIOGRAM T WAVE INVERSION [None]
  - INTRACARDIAC THROMBUS [None]
  - MUSCULOSKELETAL CHEST PAIN [None]
  - VENTRICULAR HYPERTROPHY [None]
